FAERS Safety Report 9961532 (Version 1)
Quarter: 2014Q1

REPORT INFORMATION
  Report Type: Spontaneous
  Country: US (occurrence: None)
  Receive Date: 20140304
  Receipt Date: 20140304
  Transmission Date: 20141002
  Serious: Yes (Hospitalization)
  Sender: FDA-Public Use
  Company Number: None

PATIENT
  Age: 78 Year
  Sex: Male

DRUGS (2)
  1. HALOPERIDOL [Suspect]
     Indication: BIPOLAR I DISORDER
     Route: 048
     Dates: start: 19960504, end: 20131205
  2. OLANZAPINE [Suspect]
     Route: 048
     Dates: start: 20030405, end: 20131205

REACTIONS (1)
  - Respiratory failure [None]
